FAERS Safety Report 13180367 (Version 1)
Quarter: 2017Q1

REPORT INFORMATION
  Report Type: Report from Study
  Country: US (occurrence: US)
  Receive Date: 20170202
  Receipt Date: 20170202
  Transmission Date: 20170428
  Serious: Yes (Hospitalization)
  Sender: FDA-Public Use
  Company Number: PHHO2017US002198

PATIENT
  Age: 73 Year
  Sex: Female
  Weight: 64.8 kg

DRUGS (2)
  1. FARYDAK [Suspect]
     Active Substance: PANOBINOSTAT
     Indication: PLASMA CELL MYELOMA
     Dosage: 20 MG, QD
     Route: 048
     Dates: start: 20161205, end: 20170121
  2. IXAZOMIB [Suspect]
     Active Substance: IXAZOMIB
     Indication: PLASMA CELL MYELOMA
     Dosage: 4 MG, QD
     Route: 048
     Dates: start: 20161205, end: 20170119

REACTIONS (2)
  - Diarrhoea [Unknown]
  - Vomiting [Unknown]

NARRATIVE: CASE EVENT DATE: 20170119
